FAERS Safety Report 14794990 (Version 1)
Quarter: 2018Q2

REPORT INFORMATION
  Report Type: Spontaneous
  Country: US (occurrence: US)
  Receive Date: 20180423
  Receipt Date: 20180423
  Transmission Date: 20180711
  Serious: No
  Sender: FDA-Public Use
  Company Number: US-LEXICON PHARMACEUTICALS, INC-18-1606-00348

PATIENT
  Age: 50 Year
  Sex: Male

DRUGS (28)
  1. IODINE. [Concomitant]
     Active Substance: IODINE
  2. KEPPRA [Concomitant]
     Active Substance: LEVETIRACETAM
  3. COENZYME Q10 [Concomitant]
     Active Substance: UBIDECARENONE
  4. HYZAAR [Concomitant]
     Active Substance: HYDROCHLOROTHIAZIDE\LOSARTAN POTASSIUM
  5. GINGER. [Concomitant]
     Active Substance: GINGER
  6. VITAMIN D [Concomitant]
     Active Substance: CHOLECALCIFEROL
  7. PRENATAL [Concomitant]
     Active Substance: VITAMINS
  8. TELOTRISTAT ETHYL [Suspect]
     Active Substance: TELOTRISTAT ETHYL
     Indication: CARCINOID SYNDROME
     Route: 048
     Dates: start: 20180208
  9. METHOCARBAMOL. [Concomitant]
     Active Substance: METHOCARBAMOL
  10. ZOFRAN [Concomitant]
     Active Substance: ONDANSETRON HYDROCHLORIDE
  11. FLORA ASSIST [Concomitant]
  12. LAMICTAL [Concomitant]
     Active Substance: LAMOTRIGINE
  13. FLOMAX [Concomitant]
     Active Substance: TAMSULOSIN HYDROCHLORIDE
  14. CHOLESTYRAMINE. [Concomitant]
     Active Substance: CHOLESTYRAMINE
  15. SANDOSTATIN [Concomitant]
     Active Substance: OCTREOTIDE ACETATE
  16. AFINITOR [Concomitant]
     Active Substance: EVEROLIMUS
  17. PROPRANOLOL [Concomitant]
     Active Substance: PROPRANOLOL HYDROCHLORIDE
  18. NEXIUM [Concomitant]
     Active Substance: ESOMEPRAZOLE MAGNESIUM
  19. HYDROMORPHONE [Concomitant]
     Active Substance: HYDROMORPHONE
  20. MS CONTIN [Concomitant]
     Active Substance: MORPHINE SULFATE
  21. ARABINOGALACTAN [Concomitant]
  22. NUX VOMICA [Concomitant]
  23. OCTREOTIDE. [Concomitant]
     Active Substance: OCTREOTIDE
  24. OCTREOTIDE ACETATE. [Concomitant]
     Active Substance: OCTREOTIDE ACETATE
  25. SLEEP AID [Concomitant]
     Active Substance: DIPHENHYDRAMINE HYDROCHLORIDE\DOXYLAMINE SUCCINATE
  26. ATORVASTATIN [Concomitant]
     Active Substance: ATORVASTATIN
  27. HYDROCORTISONE. [Concomitant]
     Active Substance: HYDROCORTISONE
  28. PREDNISONE. [Concomitant]
     Active Substance: PREDNISONE

REACTIONS (1)
  - Hypertension [Unknown]

NARRATIVE: CASE EVENT DATE: 201803
